FAERS Safety Report 20351433 (Version 13)
Quarter: 2022Q4

REPORT INFORMATION
  Report Type: Report from Study
  Country: CA (occurrence: CA)
  Receive Date: 20220119
  Receipt Date: 20221128
  Transmission Date: 20230113
  Serious: Yes (Hospitalization)
  Sender: FDA-Public Use
  Company Number: CA-PFIZER INC-202200064996

PATIENT
  Age: 48 Year
  Sex: Female

DRUGS (55)
  1. AMLODIPINE BESYLATE [Suspect]
     Active Substance: AMLODIPINE BESYLATE
     Indication: Hypertension
     Dosage: 2.5 MILLIGRAM, QD
     Route: 065
  2. BILASTINE [Suspect]
     Active Substance: BILASTINE
     Dosage: 20 MILLIGRAM
     Route: 048
  3. BILASTINE [Suspect]
     Active Substance: BILASTINE
     Dosage: 20 MILLIGRAM
     Route: 048
  4. LORAZEPAM [Suspect]
     Active Substance: LORAZEPAM
     Dosage: UNKNOWN
  5. LORAZEPAM [Suspect]
     Active Substance: LORAZEPAM
     Dosage: UNK
  6. PANTOPRAZOLE [Suspect]
     Active Substance: PANTOPRAZOLE
     Dosage: UNKNOWN
  7. ALVESCO [Suspect]
     Active Substance: CICLESONIDE
     Dosage: 2 DOSAGE FORM, BID
     Route: 065
     Dates: start: 20100310
  8. ALVESCO [Suspect]
     Active Substance: CICLESONIDE
     Dosage: 2 DOSAGE FORM, BID
     Route: 065
     Dates: start: 20100310
  9. ALVESCO [Suspect]
     Active Substance: CICLESONIDE
     Dosage: 1 DOSAGE FORM, BID
     Route: 065
  10. ALVESCO [Suspect]
     Active Substance: CICLESONIDE
     Dosage: UNK UNK, BID (UNKNOWN DOSE TWICE DAILY)
     Route: 065
  11. OMALIZUMAB [Suspect]
     Active Substance: OMALIZUMAB
     Indication: Asthma
     Dosage: 300 MILLIGRAM
     Route: 058
  12. OMALIZUMAB [Suspect]
     Active Substance: OMALIZUMAB
     Dosage: 300 MILLIGRAM
     Route: 058
     Dates: start: 20180205
  13. OMALIZUMAB [Suspect]
     Active Substance: OMALIZUMAB
     Dosage: 300 MG EVERY FOUR WEEKS
     Route: 058
     Dates: start: 20190708
  14. OMALIZUMAB [Suspect]
     Active Substance: OMALIZUMAB
     Dosage: 300 MG EVERY FOUR WEEKS
     Route: 058
     Dates: start: 20180913
  15. OMALIZUMAB [Suspect]
     Active Substance: OMALIZUMAB
     Dosage: UNK
     Route: 058
     Dates: start: 20170110
  16. OMALIZUMAB [Suspect]
     Active Substance: OMALIZUMAB
     Dosage: 300 MG
     Route: 058
  17. OMALIZUMAB [Suspect]
     Active Substance: OMALIZUMAB
     Dosage: UNK
     Route: 065
     Dates: start: 20160622
  18. OMALIZUMAB [Suspect]
     Active Substance: OMALIZUMAB
     Dosage: UNK
     Route: 065
     Dates: start: 20161115
  19. OMALIZUMAB [Suspect]
     Active Substance: OMALIZUMAB
     Dosage: 300 MG EVERY FOUR WEEKS
     Route: 065
     Dates: start: 20180205
  20. OMALIZUMAB [Suspect]
     Active Substance: OMALIZUMAB
     Dosage: UNK
     Route: 065
     Dates: start: 20161213
  21. OMALIZUMAB [Suspect]
     Active Substance: OMALIZUMAB
     Dosage: 300 MG EVERY FOUR WEEKS
     Route: 065
     Dates: start: 20180205
  22. OMALIZUMAB [Suspect]
     Active Substance: OMALIZUMAB
     Dosage: UNK
     Route: 065
     Dates: start: 20180112
  23. OMALIZUMAB [Suspect]
     Active Substance: OMALIZUMAB
     Indication: Asthma
     Dosage: 300 MILLIGRAM
     Route: 058
  24. OMALIZUMAB [Suspect]
     Active Substance: OMALIZUMAB
     Dosage: UNK
     Route: 065
     Dates: start: 20160622
  25. OMALIZUMAB [Suspect]
     Active Substance: OMALIZUMAB
     Dosage: UNK
     Route: 065
     Dates: start: 20161115
  26. OMALIZUMAB [Suspect]
     Active Substance: OMALIZUMAB
     Dosage: 300 UNK
     Route: 065
     Dates: start: 20180205
  27. OMALIZUMAB [Suspect]
     Active Substance: OMALIZUMAB
     Dosage: 300 MILLIGRAM
     Route: 058
     Dates: start: 20180205
  28. OMALIZUMAB [Suspect]
     Active Substance: OMALIZUMAB
     Dosage: UNK
     Route: 065
     Dates: start: 20180205
  29. OMALIZUMAB [Suspect]
     Active Substance: OMALIZUMAB
     Dosage: UNK
     Route: 065
     Dates: start: 20161213
  30. OMALIZUMAB [Suspect]
     Active Substance: OMALIZUMAB
     Dosage: 300 MILLIGRAM
     Route: 058
     Dates: start: 20190708
  31. OMALIZUMAB [Suspect]
     Active Substance: OMALIZUMAB
     Dosage: 300 MILLIGRAM
     Route: 058
     Dates: start: 20180913
  32. OMALIZUMAB [Suspect]
     Active Substance: OMALIZUMAB
     Dosage: 300 MILLIGRAM
     Route: 065
     Dates: start: 20180205
  33. OMALIZUMAB [Suspect]
     Active Substance: OMALIZUMAB
     Dosage: UNK
     Route: 065
     Dates: start: 20180205
  34. OMALIZUMAB [Suspect]
     Active Substance: OMALIZUMAB
     Dosage: UNK
     Route: 058
     Dates: start: 20170110
  35. OMALIZUMAB [Suspect]
     Active Substance: OMALIZUMAB
     Dosage: UNK
     Route: 065
     Dates: start: 20180112
  36. OMALIZUMAB [Suspect]
     Active Substance: OMALIZUMAB
     Dosage: 300 UNK
     Route: 058
  37. SALMETEROL XINAFOATE [Suspect]
     Active Substance: SALMETEROL XINAFOATE
     Dosage: UNK, BID
     Route: 065
  38. SALMETEROL XINAFOATE [Suspect]
     Active Substance: SALMETEROL XINAFOATE
     Dosage: 1 DOSAGE FORM
     Route: 065
     Dates: start: 20160110
  39. SALMETEROL XINAFOATE [Suspect]
     Active Substance: SALMETEROL XINAFOATE
     Dosage: 1 DOSAGE FORM, BID (1 DF, 2X/DAY)
     Route: 065
  40. SALMETEROL XINAFOATE [Suspect]
     Active Substance: SALMETEROL XINAFOATE
     Dosage: 1 DOSAGE FORM, BID (1 DF, 2X/DAY)
     Route: 065
  41. SINGULAIR [Suspect]
     Active Substance: MONTELUKAST SODIUM
     Dosage: 1 DOSAGE FORM, QD
     Route: 065
     Dates: start: 20110310
  42. SINGULAIR [Suspect]
     Active Substance: MONTELUKAST SODIUM
     Dosage: 1 DOSAGE FORM, QD
     Route: 065
     Dates: start: 20110310
  43. SINGULAIR [Suspect]
     Active Substance: MONTELUKAST SODIUM
     Dosage: 1 DOSAGE FORM, QD (1 DF, 1X/DAY)
     Route: 065
  44. ZOPICLONE [Suspect]
     Active Substance: ZOPICLONE
     Dosage: UNKNOWN
     Route: 065
  45. ZOPICLONE [Suspect]
     Active Substance: ZOPICLONE
     Dosage: UNKNOWN
     Route: 065
  46. ATROVENT [Concomitant]
     Active Substance: IPRATROPIUM BROMIDE
     Dosage: 2 DF, AS NEEDED
     Dates: start: 20100310
  47. ATROVENT [Concomitant]
     Active Substance: IPRATROPIUM BROMIDE
     Dosage: 2 DOSAGE FORM
  48. MOMETASONE [Concomitant]
     Active Substance: MOMETASONE
     Dosage: UNK
     Route: 065
  49. PREDNISONE [Concomitant]
     Active Substance: PREDNISONE
     Dosage: UNK
  50. PULMICORT TURBUHALER [Concomitant]
     Active Substance: BUDESONIDE
     Dosage: 0.25 MG, 2X/DAY
     Dates: start: 201611
  51. PULMICORT TURBUHALER [Concomitant]
     Active Substance: BUDESONIDE
     Dosage: 0.25 MG, 2X/DAY
  52. SODIUM BICARBONATE\SODIUM CHLORIDE [Concomitant]
     Active Substance: SODIUM BICARBONATE\SODIUM CHLORIDE
     Dosage: UNK
     Route: 045
  53. SODIUM BICARBONATE\SODIUM CHLORIDE [Concomitant]
     Active Substance: SODIUM BICARBONATE\SODIUM CHLORIDE
     Dosage: UNK
     Route: 065
  54. ALBUTEROL SULFATE [Concomitant]
     Active Substance: ALBUTEROL SULFATE
     Dosage: 4-6 PUFFS, QD FOR DOSAGE OF 2 DF BID
     Route: 065
     Dates: start: 2021
  55. VENTOLIN [Concomitant]
     Active Substance: ALBUTEROL SULFATE
     Dosage: 1 DF ONCE DAILY INHALATION.
     Route: 055

REACTIONS (15)
  - Cough [Not Recovered/Not Resolved]
  - Dyspnoea [Not Recovered/Not Resolved]
  - Illness [Not Recovered/Not Resolved]
  - Inappropriate schedule of product administration [Not Recovered/Not Resolved]
  - Lung disorder [Not Recovered/Not Resolved]
  - Middle insomnia [Not Recovered/Not Resolved]
  - Obstructive airways disorder [Not Recovered/Not Resolved]
  - Product dose omission issue [Not Recovered/Not Resolved]
  - Sinusitis [Not Recovered/Not Resolved]
  - Wheezing [Not Recovered/Not Resolved]
  - Drug hypersensitivity [Not Recovered/Not Resolved]
  - Hypertension [Not Recovered/Not Resolved]
  - Malaise [Not Recovered/Not Resolved]
  - Injection site pain [Not Recovered/Not Resolved]
  - Asthma [Not Recovered/Not Resolved]

NARRATIVE: CASE EVENT DATE: 20170221
